FAERS Safety Report 12742500 (Version 2)
Quarter: 2016Q4

REPORT INFORMATION
  Report Type: Spontaneous
  Country: None (occurrence: FR)
  Receive Date: 20160914
  Receipt Date: 20161012
  Transmission Date: 20170207
  Serious: Yes (Other)
  Sender: FDA-Public Use
  Company Number: FR-EISAI MEDICAL RESEARCH-EC-2016-020071

PATIENT
  Sex: Female

DRUGS (4)
  1. HALAVEN [Suspect]
     Active Substance: ERIBULIN MESYLATE
     Route: 041
     Dates: start: 2016
  2. XGEVA [Concomitant]
     Active Substance: DENOSUMAB
     Indication: METASTASES TO BONE
     Dosage: UNKNOWN
     Route: 065
  3. HALAVEN [Suspect]
     Active Substance: ERIBULIN MESYLATE
     Route: 041
     Dates: start: 201608, end: 2016
  4. HALAVEN [Suspect]
     Active Substance: ERIBULIN MESYLATE
     Indication: BRAIN CANCER METASTATIC
     Route: 041
     Dates: start: 201603, end: 20160811

REACTIONS (3)
  - Dizziness [Recovered/Resolved]
  - Motor dysfunction [Recovered/Resolved]
  - Paralysis [Recovered/Resolved]

NARRATIVE: CASE EVENT DATE: 2016
